FAERS Safety Report 22145947 (Version 2)
Quarter: 2023Q4

REPORT INFORMATION
  Report Type: Spontaneous
  Country: JP (occurrence: JP)
  Receive Date: 20230328
  Receipt Date: 20231212
  Transmission Date: 20240110
  Serious: Yes (Hospitalization, Other)
  Sender: FDA-Public Use
  Company Number: JP-002147023-NVSJ2023JP001154

PATIENT
  Age: 57 Year
  Sex: Male

DRUGS (14)
  1. NEORAL [Suspect]
     Active Substance: CYCLOSPORINE
     Indication: Renal transplant
     Dosage: 50 MG
     Route: 048
  2. NEORAL [Suspect]
     Active Substance: CYCLOSPORINE
     Indication: Prophylaxis against transplant rejection
  3. MYCOPHENOLATE MOFETIL [Suspect]
     Active Substance: MYCOPHENOLATE MOFETIL
     Indication: Product used for unknown indication
     Dosage: 250 MG
     Route: 048
  4. PREDNISOLONE [Concomitant]
     Active Substance: PREDNISOLONE
     Indication: Product used for unknown indication
     Dosage: 7.5 MG
     Route: 048
  5. FEBUXOSTAT [Concomitant]
     Active Substance: FEBUXOSTAT
     Indication: Product used for unknown indication
     Dosage: 40 MG
     Route: 048
  6. ATORVASTATIN [Concomitant]
     Active Substance: ATORVASTATIN
     Indication: Product used for unknown indication
     Dosage: 15 MG
     Route: 048
  7. LAFUTIDINE [Concomitant]
     Active Substance: LAFUTIDINE
     Indication: Product used for unknown indication
     Dosage: 10 MG
     Route: 048
  8. NIFEDIPINE [Concomitant]
     Active Substance: NIFEDIPINE
     Indication: Product used for unknown indication
     Dosage: 80 MG
     Route: 048
  9. CARVEDILOL [Concomitant]
     Active Substance: CARVEDILOL
     Indication: Product used for unknown indication
     Dosage: 10 MG
     Route: 048
  10. OLMESARTAN [Concomitant]
     Active Substance: OLMESARTAN
     Indication: Product used for unknown indication
     Dosage: 10 MG
     Route: 048
  11. FUROSEMIDE [Concomitant]
     Active Substance: FUROSEMIDE
     Indication: Product used for unknown indication
     Dosage: 10 MG
     Route: 048
  12. ALFACALCIDOL [Concomitant]
     Active Substance: ALFACALCIDOL
     Indication: Product used for unknown indication
     Dosage: 0.25 UG
     Route: 048
  13. SODIUM CARBONATE [Concomitant]
     Active Substance: SODIUM CARBONATE
     Indication: Product used for unknown indication
     Dosage: 2 G
     Route: 048
  14. CALCIUM CARBONATE [Concomitant]
     Active Substance: CALCIUM CARBONATE
     Indication: Product used for unknown indication
     Dosage: 1000 MG
     Route: 048

REACTIONS (6)
  - Posterior reversible encephalopathy syndrome [Recovered/Resolved]
  - Altered state of consciousness [Recovered/Resolved]
  - Renal transplant failure [Recovering/Resolving]
  - Chronic allograft nephropathy [Unknown]
  - Angiopathy [Unknown]
  - Immunosuppressant drug level increased [Unknown]
